FAERS Safety Report 7679196-4 (Version None)
Quarter: 2011Q3

REPORT INFORMATION
  Report Type: 
  Country: None (occurrence: None)
  Receive Date: 20110812
  Receipt Date: 20110804
  Transmission Date: 20111222
  Serious: Yes (Other)
  Sender: FDA-Public Use
  Company Number: JP-JNJFOC-20110106969

PATIENT
  Age: 75 Year
  Sex: Male
  Weight: 53 kg

DRUGS (13)
  1. FENTANYL CITRATE [Suspect]
     Indication: SPINAL COLUMN STENOSIS
     Route: 062
     Dates: start: 20110506
  2. PROCHLORPERAZINE [Suspect]
     Route: 048
     Dates: start: 20101224, end: 20110107
  3. FENTANYL CITRATE [Suspect]
     Route: 062
     Dates: start: 20110128, end: 20110408
  4. UNKNOWN MEDICATION [Concomitant]
     Indication: PRODUCT USED FOR UNKNOWN INDICATION
     Route: 048
     Dates: start: 20110107
  5. FENTANYL CITRATE [Suspect]
     Route: 062
     Dates: start: 20110128, end: 20110408
  6. PROCHLORPERAZINE [Suspect]
     Indication: PROPHYLAXIS
     Route: 048
     Dates: start: 20110108, end: 20110114
  7. FENTANYL CITRATE [Suspect]
     Route: 062
     Dates: start: 20110506
  8. FENTANYL CITRATE [Suspect]
     Route: 062
     Dates: start: 20101224, end: 20110121
  9. FENTANYL CITRATE [Suspect]
     Route: 062
     Dates: start: 20110409, end: 20110422
  10. KETALAR [Concomitant]
     Indication: PAIN
     Route: 041
  11. FENTANYL CITRATE [Suspect]
     Indication: PAIN
     Route: 062
     Dates: start: 20110409, end: 20110422
  12. LYRICA [Concomitant]
     Indication: PAIN
     Route: 048
     Dates: start: 20101112
  13. FENTANYL CITRATE [Suspect]
     Route: 062
     Dates: start: 20101224, end: 20110121

REACTIONS (10)
  - ASTHENIA [None]
  - ACTIVITIES OF DAILY LIVING IMPAIRED [None]
  - NAUSEA [None]
  - PRURITUS [None]
  - SALIVARY HYPERSECRETION [None]
  - MALAISE [None]
  - GAIT DISTURBANCE [None]
  - VOMITING [None]
  - CONSTIPATION [None]
  - DYSPHAGIA [None]
